FAERS Safety Report 6448478-6 (Version None)
Quarter: 2009Q4

REPORT INFORMATION
  Report Type: 
  Country: None (occurrence: None)
  Receive Date: 20091120
  Receipt Date: 20091117
  Transmission Date: 20100525
  Serious: Yes (Death)
  Sender: FDA-Public Use
  Company Number: JP-ASTRAZENECA-2009SE27122

PATIENT
  Age: 78 Year
  Sex: Female

DRUGS (1)
  1. DIPRIVAN [Suspect]
     Dosage: 200 MG (20 ML X 1 VIAL)
     Route: 042
     Dates: start: 20080501, end: 20080501

REACTIONS (2)
  - MULTI-ORGAN FAILURE [None]
  - SHOCK [None]
